FAERS Safety Report 15057301 (Version 1)
Quarter: 2018Q2

REPORT INFORMATION
  Report Type: Spontaneous
  Country: US (occurrence: US)
  Receive Date: 20180604
  Receipt Date: 20180604
  Transmission Date: 20180711
  Serious: No
  Sender: FDA-Public Use
  Company Number: None

PATIENT
  Age: 61 Year
  Sex: Female
  Weight: 56.7 kg

DRUGS (12)
  1. PEMETREXED. [Concomitant]
     Active Substance: PEMETREXED
  2. CLONIDINE. [Concomitant]
     Active Substance: CLONIDINE
  3. PEMBROLIZUMAB. [Concomitant]
     Active Substance: PEMBROLIZUMAB
  4. MELOXICAM. [Concomitant]
     Active Substance: MELOXICAM
  5. ALPRAZOLAM. [Concomitant]
     Active Substance: ALPRAZOLAM
  6. TYLENOL [Concomitant]
     Active Substance: ACETAMINOPHEN
  7. NEULASTA [Concomitant]
     Active Substance: PEGFILGRASTIM
  8. OXYCODONE [Concomitant]
     Active Substance: OXYCODONE
  9. FENTANYL. [Concomitant]
     Active Substance: FENTANYL
  10. CARBOPLATIN/TAXOL CHEMO [Suspect]
     Active Substance: CARBOPLATIN\PACLITAXEL
     Indication: LUNG NEOPLASM MALIGNANT
     Route: 042
     Dates: start: 20170208, end: 20171010
  11. AMITRIPTYLINE [Concomitant]
     Active Substance: AMITRIPTYLINE
  12. ZONISAMIDE. [Concomitant]
     Active Substance: ZONISAMIDE

REACTIONS (3)
  - Neuropathy peripheral [None]
  - Drug ineffective [None]
  - Pain [None]
